FAERS Safety Report 5218809-3 (Version None)
Quarter: 2007Q1

REPORT INFORMATION
  Report Type: 
  Country: None (occurrence: None)
  Receive Date: 20070122
  Receipt Date: 20070122
  Transmission Date: 20070707
  Serious: Yes (Hospitalization)
  Sender: FDA-Public Use
  Company Number: None

PATIENT
  Age: 58 Year
  Sex: Male
  Weight: 88.4514 kg

DRUGS (2)
  1. POTASSIUM CHLORIDE [Suspect]
     Indication: HYPOKALAEMIA
     Dosage: 40 MEQ  BID  PO
     Route: 048
     Dates: start: 20061201, end: 20061204
  2. SPIRONOLACTONE [Suspect]
     Dosage: 25 MG  Q DAILY  PO
     Route: 048

REACTIONS (2)
  - HYPERKALAEMIA [None]
  - WRONG DRUG ADMINISTERED [None]
